FAERS Safety Report 9248710 (Version 1)
Quarter: 2013Q1

REPORT INFORMATION
  Report Type: Spontaneous
  Country: US (occurrence: None)
  Receive Date: 20121120
  Receipt Date: 20121120
  Transmission Date: 20140127
  Serious: No
  Sender: FDA-Public Use
  Company Number: 1000038373

PATIENT
  Age: 54 Year
  Sex: Female

DRUGS (4)
  1. VIIBRYD (VILAZODONE) (TABLETS) [Suspect]
     Indication: DEPRESSION
     Route: 048
     Dates: start: 201208, end: 201208
  2. VIIBRYD (VILAZODONE) (TABLETS) [Suspect]
     Indication: ANXIETY
     Route: 048
     Dates: start: 201208, end: 201208
  3. VIIBRYD (VILAZODONE) (TABLETS) [Suspect]
     Indication: PANIC ATTACK
     Route: 048
     Dates: start: 201208, end: 201208
  4. MULTIVITAMINS [Concomitant]

REACTIONS (12)
  - Diarrhoea [None]
  - Somnolence [None]
  - Middle insomnia [None]
  - Feeling hot [None]
  - Tremor [None]
  - Pain in extremity [None]
  - Sensory disturbance [None]
  - Musculoskeletal stiffness [None]
  - Tinnitus [None]
  - Tension headache [None]
  - Photopsia [None]
  - Dizziness [None]
